FAERS Safety Report 6256601-1 (Version None)
Quarter: 2009Q3

REPORT INFORMATION
  Report Type: 
  Country: None (occurrence: None)
  Receive Date: 20090706
  Receipt Date: 20090625
  Transmission Date: 20100115
  Serious: Yes (Other)
  Sender: FDA-Public Use
  Company Number: ES-BAYER-200924037GPV

PATIENT
  Age: 63 Year
  Sex: Male

DRUGS (9)
  1. ADIRO [Suspect]
     Indication: DRUG USE FOR UNKNOWN INDICATION
     Dosage: TOTAL DAILY DOSE: 100 MG
     Route: 048
     Dates: start: 20051018
  2. PAROXETINE HCL [Suspect]
     Indication: PARAESTHESIA
     Route: 048
     Dates: start: 20080926, end: 20080929
  3. LOBIVON [Concomitant]
     Route: 048
     Dates: start: 20041110
  4. UNIKET [Concomitant]
     Route: 048
     Dates: start: 20041207
  5. CEPRANDAL [Concomitant]
     Dosage: UNIT DOSE: 20 MG
     Route: 048
     Dates: start: 20051018
  6. EZETROL [Concomitant]
     Dosage: UNIT DOSE: 10 MG
     Route: 048
     Dates: start: 20050105
  7. ZARATOR [Concomitant]
     Dosage: UNIT DOSE: 40 MG
     Route: 048
     Dates: start: 20050412
  8. TRANXILIUM [Concomitant]
     Route: 048
     Dates: start: 20050203
  9. NOCTAMID [Concomitant]
     Dosage: 2.5 MG/ML
     Route: 048
     Dates: start: 20070517

REACTIONS (3)
  - DIARRHOEA [None]
  - INSOMNIA [None]
  - RECTAL HAEMORRHAGE [None]
